FAERS Safety Report 8661090 (Version 3)
Quarter: 2013Q4

REPORT INFORMATION
  Report Type: Spontaneous
  Country: US (occurrence: US)
  Receive Date: 20120711
  Receipt Date: 20131101
  Transmission Date: 20140711
  Serious: No
  Sender: FDA-Public Use
  Company Number: US-009507513-1207USA000414

PATIENT
  Sex: Female

DRUGS (3)
  1. PROVENTIL [Suspect]
     Indication: ASTHMA
     Dosage: UNK
     Route: 048
     Dates: start: 1992
  2. ADVAIR [Concomitant]
  3. PREDNISONE [Concomitant]

REACTIONS (1)
  - Drug ineffective [Not Recovered/Not Resolved]
